FAERS Safety Report 4776692-4 (Version None)
Quarter: 2005Q3

REPORT INFORMATION
  Report Type: 
  Country: None (occurrence: None)
  Receive Date: 20050923
  Receipt Date: 20050912
  Transmission Date: 20060218
  Serious: Yes (Death)
  Sender: FDA-Public Use
  Company Number: US-JNJFOC-20040807836

PATIENT
  Sex: Female
  Weight: 47.63 kg

DRUGS (9)
  1. INFLIXIMAB [Suspect]
     Indication: RHEUMATOID ARTHRITIS
     Route: 042
  2. PROCARDIA [Concomitant]
  3. METHYLPREDNISONE [Concomitant]
  4. METHOTREXATE [Concomitant]
  5. PAXIL [Concomitant]
  6. SULFASALAZINE [Concomitant]
  7. FUROSEMIDE [Concomitant]
  8. CELEBREX [Concomitant]
  9. FOLIC ACID [Concomitant]

REACTIONS (1)
  - SARCOIDOSIS [None]
